FAERS Safety Report 25332334 (Version 1)
Quarter: 2025Q2

REPORT INFORMATION
  Report Type: Report from Study
  Country: US (occurrence: US)
  Receive Date: 20250519
  Receipt Date: 20250519
  Transmission Date: 20250716
  Serious: Yes (Death, Other)
  Sender: ROCHE
  Company Number: US-ROCHE-10000287284

PATIENT

DRUGS (18)
  1. RIBAVIRIN [Suspect]
     Active Substance: RIBAVIRIN
     Indication: Hepatitis C
     Route: 048
  2. MYCOPHENOLATE MOFETIL [Suspect]
     Active Substance: MYCOPHENOLATE MOFETIL
     Indication: Prophylaxis against transplant rejection
     Route: 065
  3. MYCOPHENOLATE MOFETIL [Suspect]
     Active Substance: MYCOPHENOLATE MOFETIL
     Indication: Prophylaxis against transplant rejection
  4. LEDIPASVIR\SOFOSBUVIR [Suspect]
     Active Substance: LEDIPASVIR\SOFOSBUVIR
     Indication: Hepatitis C
     Route: 048
  5. OMBITASVIR\PARITAPREVIR\RITONAVIR [Suspect]
     Active Substance: OMBITASVIR\PARITAPREVIR\RITONAVIR
     Indication: Hepatitis C
     Route: 048
  6. DASABUVIR [Suspect]
     Active Substance: DASABUVIR
     Indication: Hepatitis C
     Route: 048
  7. DACLATASVIR [Suspect]
     Active Substance: DACLATASVIR
     Indication: Hepatitis C
     Route: 048
  8. SOFOSBUVIR [Suspect]
     Active Substance: SOFOSBUVIR
     Indication: Hepatitis C
     Route: 048
  9. TACROLIMUS [Suspect]
     Active Substance: TACROLIMUS
     Indication: Prophylaxis against transplant rejection
     Route: 065
  10. TACROLIMUS [Suspect]
     Active Substance: TACROLIMUS
     Indication: Prophylaxis against transplant rejection
  11. CYCLOSPORINE [Suspect]
     Active Substance: CYCLOSPORINE
     Indication: Prophylaxis against transplant rejection
     Route: 065
  12. CYCLOSPORINE [Suspect]
     Active Substance: CYCLOSPORINE
     Indication: Prophylaxis against transplant rejection
  13. EVEROLIMUS [Suspect]
     Active Substance: EVEROLIMUS
     Indication: Prophylaxis against transplant rejection
     Route: 065
  14. EVEROLIMUS [Suspect]
     Active Substance: EVEROLIMUS
     Indication: Prophylaxis against transplant rejection
  15. SIROLIMUS [Suspect]
     Active Substance: SIROLIMUS
     Indication: Prophylaxis against transplant rejection
     Route: 065
  16. SIROLIMUS [Suspect]
     Active Substance: SIROLIMUS
     Indication: Prophylaxis against transplant rejection
  17. MYCOPHENOLIC ACID [Suspect]
     Active Substance: MYCOPHENOLIC ACID
     Indication: Prophylaxis against transplant rejection
     Route: 065
  18. MYCOPHENOLIC ACID [Suspect]
     Active Substance: MYCOPHENOLIC ACID
     Indication: Prophylaxis against transplant rejection

REACTIONS (42)
  - Infection [Unknown]
  - Infestation [Unknown]
  - Gastrointestinal haemorrhage [Unknown]
  - Acute kidney injury [Unknown]
  - Anaemia [Unknown]
  - Pancytopenia [Unknown]
  - Angina pectoris [Unknown]
  - Generalised oedema [Unknown]
  - Pyrexia [Unknown]
  - Kidney transplant rejection [Unknown]
  - Hyperglycaemia [Unknown]
  - Chronic obstructive pulmonary disease [Unknown]
  - Hepatic encephalopathy [Unknown]
  - Hepatocellular carcinoma [Unknown]
  - Cholangitis [Unknown]
  - Cholelithiasis [Unknown]
  - Jaundice [Unknown]
  - Fatigue [Unknown]
  - Headache [Unknown]
  - Nausea [Unknown]
  - Diarrhoea [Unknown]
  - Insomnia [Unknown]
  - Dizziness [Unknown]
  - Influenza like illness [Unknown]
  - Dyspnoea [Unknown]
  - Rash [Unknown]
  - Cough [Unknown]
  - Pruritus [Unknown]
  - Decreased appetite [Unknown]
  - Irritability [Unknown]
  - Palpitations [Unknown]
  - Tachycardia [Unknown]
  - Cardiac flutter [Unknown]
  - Myocardial infarction [Unknown]
  - Sinus node dysfunction [Unknown]
  - Supraventricular tachycardia [Unknown]
  - Vomiting [Unknown]
  - Bile duct stenosis [Unknown]
  - Drug ineffective [Unknown]
  - Sepsis [Fatal]
  - Gastrointestinal perforation [Unknown]
  - Haemolytic anaemia [Unknown]
